FAERS Safety Report 15771186 (Version 1)
Quarter: 2018Q4

REPORT INFORMATION
  Report Type: Spontaneous
  Country: US (occurrence: US)
  Receive Date: 20181228
  Receipt Date: 20181228
  Transmission Date: 20190205
  Serious: Yes (Other)
  Sender: FDA-Public Use
  Company Number: None

PATIENT
  Age: 41 Year
  Sex: Female
  Weight: 104.4 kg

DRUGS (16)
  1. RANITIDINE. [Concomitant]
     Active Substance: RANITIDINE
  2. HYDROCHLOROTHIAZIDE. [Concomitant]
     Active Substance: HYDROCHLOROTHIAZIDE
  3. LEVOTHYROXINE. [Concomitant]
     Active Substance: LEVOTHYROXINE
  4. DICYCLOMINE [Concomitant]
     Active Substance: DICYCLOMINE HYDROCHLORIDE
  5. MELOXICAM. [Concomitant]
     Active Substance: MELOXICAM
  6. TOVIAZ [Concomitant]
     Active Substance: FESOTERODINE FUMARATE
  7. TRULANCE [Suspect]
     Active Substance: PLECANATIDE
     Dosage: ?          QUANTITY:7 TABLET(S);?
     Route: 048
     Dates: start: 20181227, end: 20181228
  8. AMITRIPTYLINE [Concomitant]
     Active Substance: AMITRIPTYLINE
  9. TIZANIDINE. [Concomitant]
     Active Substance: TIZANIDINE
  10. RIZATRIPTAN. [Concomitant]
     Active Substance: RIZATRIPTAN
  11. LYRICA [Concomitant]
     Active Substance: PREGABALIN
  12. DULOXETINE. [Concomitant]
     Active Substance: DULOXETINE
  13. PANTOPRAZOLE [Concomitant]
     Active Substance: PANTOPRAZOLE
  14. AJOVY [Concomitant]
     Active Substance: FREMANEZUMAB-VFRM
  15. LISINOPRIL. [Concomitant]
     Active Substance: LISINOPRIL
  16. TEMAZEPAN [Concomitant]

REACTIONS (8)
  - Vision blurred [None]
  - Abdominal pain upper [None]
  - Palpitations [None]
  - Diarrhoea [None]
  - Syncope [None]
  - Burning sensation [None]
  - Vertigo [None]
  - Loss of consciousness [None]

NARRATIVE: CASE EVENT DATE: 20181228
